FAERS Safety Report 7266135-3 (Version None)
Quarter: 2011Q1

REPORT INFORMATION
  Report Type: 
  Country: None (occurrence: None)
  Receive Date: 20110120
  Receipt Date: 20110107
  Transmission Date: 20110831
  Serious: Yes (Hospitalization)
  Sender: FDA-Public Use
  Company Number: 012246

PATIENT

DRUGS (1)
  1. LEVETIRACETAM [Suspect]
     Indication: PARTIAL SEIZURES

REACTIONS (5)
  - CONCUSSION [None]
  - AGGRESSION [None]
  - DEPRESSION [None]
  - ROAD TRAFFIC ACCIDENT [None]
  - FACIAL BONES FRACTURE [None]
